FAERS Safety Report 5864164-5 (Version None)
Quarter: 2008Q3

REPORT INFORMATION
  Report Type: 
  Country: None (occurrence: None)
  Receive Date: 20080829
  Receipt Date: 20080818
  Transmission Date: 20090109
  Serious: Yes (Other)
  Sender: FDA-Public Use
  Company Number: JP-BRISTOL-MYERS SQUIBB COMPANY-14313407

PATIENT
  Age: 51 Year
  Sex: Male
  Weight: 69 kg

DRUGS (3)
  1. ABILIFY [Suspect]
     Indication: SCHIZOPHRENIA
     Dosage: DOSE INCREASED TO 30 MG DAILY ON 13-MAR-2008.
     Route: 048
     Dates: start: 20070802, end: 20080312
  2. OLMETEC [Concomitant]
  3. ZYPREXA [Concomitant]
     Dates: end: 20070813

REACTIONS (1)
  - HYPERTENSIVE CRISIS [None]
